FAERS Safety Report 7482089-9 (Version None)
Quarter: 2011Q2

REPORT INFORMATION
  Report Type: 
  Country: None (occurrence: None)
  Receive Date: 20110516
  Receipt Date: 20110506
  Transmission Date: 20111010
  Serious: Yes (Other)
  Sender: FDA-Public Use
  Company Number: US-ASTRAZENECA-2011SE26709

PATIENT
  Sex: Male

DRUGS (3)
  1. SEROQUEL [Suspect]
     Route: 048
  2. CLOZARIL [Concomitant]
  3. UNSPECIFIED ANTIDEPRESSANT [Concomitant]

REACTIONS (9)
  - LOSS OF CONSCIOUSNESS [None]
  - HALLUCINATION [None]
  - DELUSION [None]
  - AGITATION [None]
  - DIZZINESS [None]
  - AMNESIA [None]
  - INSOMNIA [None]
  - ANXIETY [None]
  - DRUG DOSE OMISSION [None]
